FAERS Safety Report 19166778 (Version 1)
Quarter: 2021Q2

REPORT INFORMATION
  Report Type: Spontaneous
  Country: US (occurrence: US)
  Receive Date: 20210421
  Receipt Date: 20210421
  Transmission Date: 20210717
  Serious: Yes (Hospitalization, Disabling, Other)
  Sender: FDA-Public Use
  Company Number: US-BIOGEN-2021BI01001387

PATIENT
  Age: 47 Year
  Sex: Female

DRUGS (4)
  1. AUBAGIO [Suspect]
     Active Substance: TERIFLUNOMIDE
     Indication: MULTIPLE SCLEROSIS
     Route: 048
     Dates: start: 20150902, end: 20160101
  2. TECFIDERA [Suspect]
     Active Substance: DIMETHYL FUMARATE
     Indication: PRODUCT USED FOR UNKNOWN INDICATION
     Route: 065
  3. BOTOX [Suspect]
     Active Substance: ONABOTULINUMTOXINA
     Indication: PRODUCT USED FOR UNKNOWN INDICATION
     Route: 042
  4. OCREVUS [Suspect]
     Active Substance: OCRELIZUMAB
     Indication: PRODUCT USED FOR UNKNOWN INDICATION
     Route: 065
     Dates: start: 20190701, end: 20190722

REACTIONS (22)
  - Paralysis [Unknown]
  - Hemiparesis [Recovered/Resolved]
  - Bladder prolapse [Not Recovered/Not Resolved]
  - Rectal prolapse [Not Recovered/Not Resolved]
  - Concussion [Not Recovered/Not Resolved]
  - Oropharyngeal pain [Unknown]
  - Decreased appetite [Unknown]
  - Brain neoplasm [Not Recovered/Not Resolved]
  - Amnesia [Unknown]
  - Parkinsonism [Not Recovered/Not Resolved]
  - Prolapse [Not Recovered/Not Resolved]
  - Partial seizures [Unknown]
  - Grip strength decreased [Not Recovered/Not Resolved]
  - Fall [Recovered/Resolved]
  - Tremor [Not Recovered/Not Resolved]
  - Walking disability [Not Recovered/Not Resolved]
  - Cerebrovascular accident [Unknown]
  - Hepatic steatosis [Not Recovered/Not Resolved]
  - Seizure [Not Recovered/Not Resolved]
  - Haemorrhage [Not Recovered/Not Resolved]
  - Multiple sclerosis relapse [Not Recovered/Not Resolved]
  - Pruritus [Not Recovered/Not Resolved]

NARRATIVE: CASE EVENT DATE: 2016
